FAERS Safety Report 7769364-5 (Version None)
Quarter: 2011Q3

REPORT INFORMATION
  Report Type: 
  Country: None (occurrence: None)
  Receive Date: 20110922
  Receipt Date: 20110413
  Transmission Date: 20111222
  Serious: No
  Sender: FDA-Public Use
  Company Number: US-ASTRAZENECA-2011SE21270

PATIENT
  Age: 64 Year
  Sex: Female
  Weight: 129.3 kg

DRUGS (6)
  1. SEROQUEL [Suspect]
     Route: 048
     Dates: start: 20110101
  2. ZOLPIDEM [Concomitant]
     Indication: SLEEP DISORDER
  3. LISINOPRIL [Concomitant]
     Indication: RENAL DISORDER
  4. METFORMIN [Concomitant]
  5. SEROQUEL [Suspect]
     Indication: BIPOLAR DISORDER
     Route: 048
     Dates: end: 20110101
  6. FENOFIBRATE [Concomitant]

REACTIONS (7)
  - HYPERPHAGIA [None]
  - WEIGHT INCREASED [None]
  - DRY MOUTH [None]
  - RENAL DISORDER [None]
  - IMPAIRED HEALING [None]
  - DIABETES MELLITUS [None]
  - POLYDIPSIA [None]
